FAERS Safety Report 13123063 (Version 1)
Quarter: 2017Q1

REPORT INFORMATION
  Report Type: Spontaneous
  Country: US (occurrence: US)
  Receive Date: 20170117
  Receipt Date: 20170117
  Transmission Date: 20170428
  Serious: Yes (Death)
  Sender: FDA-Public Use
  Company Number: US-MALLINCKRODT-T201606951

PATIENT
  Age: 33 Year
  Sex: Female

DRUGS (8)
  1. HEROIN [Suspect]
     Active Substance: DIACETYLMORPHINE
     Indication: PRODUCT USED FOR UNKNOWN INDICATION
     Dosage: UNK
     Route: 048
  2. METHADONE [Suspect]
     Active Substance: METHADONE HYDROCHLORIDE
     Dosage: UNK
     Route: 051
  3. METHADONE [Suspect]
     Active Substance: METHADONE HYDROCHLORIDE
     Indication: PRODUCT USED FOR UNKNOWN INDICATION
     Dosage: UNK
     Route: 048
  4. HEROIN [Suspect]
     Active Substance: DIACETYLMORPHINE
     Route: 051
  5. METHAMPHETAMINE [Suspect]
     Active Substance: METHAMPHETAMINE
     Route: 051
  6. METHAMPHETAMINE [Suspect]
     Active Substance: METHAMPHETAMINE
     Indication: PRODUCT USED FOR UNKNOWN INDICATION
     Dosage: UNK
     Route: 048
  7. COCAINE [Suspect]
     Active Substance: COCAINE
     Indication: PRODUCT USED FOR UNKNOWN INDICATION
     Route: 048
  8. COCAINE [Suspect]
     Active Substance: COCAINE
     Dosage: UNK
     Route: 051

REACTIONS (2)
  - Drug abuse [Fatal]
  - Incorrect route of drug administration [Fatal]

NARRATIVE: CASE EVENT DATE: 2015
